FAERS Safety Report 16244661 (Version 1)
Quarter: 2019Q2

REPORT INFORMATION
  Report Type: Other
  Country: IT (occurrence: IT)
  Receive Date: 20190426
  Receipt Date: 20190426
  Transmission Date: 20190711
  Serious: Yes (Hospitalization)
  Sender: FDA-Public Use
  Company Number: IT-PIERREL PHARMA S.P.A.-2019PIR00017

PATIENT
  Age: 12 Year
  Sex: Male

DRUGS (1)
  1. ARTICAINE 4% WITH ADRENALINE 1:100,000 [Suspect]
     Active Substance: ARTICAINE\EPINEPHRINE
     Indication: DENTAL CARE
     Dosage: UNK DOSAGE UNITS, ONCE
     Route: 002
     Dates: start: 20190208, end: 20190208

REACTIONS (1)
  - Lip oedema [Unknown]

NARRATIVE: CASE EVENT DATE: 20190208
